FAERS Safety Report 6142357-X (Version None)
Quarter: 2009Q2

REPORT INFORMATION
  Report Type: 
  Country: None (occurrence: None)
  Receive Date: 20090403
  Receipt Date: 20090402
  Transmission Date: 20091009
  Serious: Yes (Hospitalization)
  Sender: FDA-Public Use
  Company Number: FR-JNJFOC-20080600038

PATIENT
  Age: 91 Year
  Sex: Female

DRUGS (6)
  1. DURAGESIC-100 [Suspect]
     Indication: DRUG USE FOR UNKNOWN INDICATION
     Route: 062
  2. ACUPAN [Interacting]
     Indication: DRUG USE FOR UNKNOWN INDICATION
     Route: 048
  3. AMLODIPINE BESYLATE [Concomitant]
  4. PREVISCAN [Concomitant]
  5. INIPOMP [Concomitant]
  6. LEXOMIL [Concomitant]

REACTIONS (10)
  - APATHY [None]
  - ASTHENIA [None]
  - BLOOD PRESSURE SYSTOLIC INCREASED [None]
  - CONFUSIONAL STATE [None]
  - DRUG INTERACTION [None]
  - DYSARTHRIA [None]
  - INCOHERENT [None]
  - INFLAMMATION [None]
  - PULSE ABSENT [None]
  - URINARY RETENTION [None]
